FAERS Safety Report 11423205 (Version 1)
Quarter: 2015Q3

REPORT INFORMATION
  Report Type: Spontaneous
  Country: US (occurrence: None)
  Receive Date: 20150826
  Receipt Date: 20150826
  Transmission Date: 20151125
  Serious: Yes (Disabling, Other)
  Sender: FDA-Public Use
  Company Number: None

PATIENT
  Age: 42 Year
  Sex: Female
  Weight: 82.1 kg

DRUGS (5)
  1. GEODON [Suspect]
     Active Substance: ZIPRASIDONE HYDROCHLORIDE\ZIPRASIDONE MESYLATE
     Dosage: 2 PILLS TWICE DAILY
  2. MULTI VITAMIN [Concomitant]
     Active Substance: VITAMINS
  3. FISH OIL [Concomitant]
     Active Substance: FISH OIL
  4. IRON [Concomitant]
     Active Substance: IRON
  5. TRILAFON [Concomitant]
     Active Substance: PERPHENAZINE

REACTIONS (8)
  - Vomiting [None]
  - Eye movement disorder [None]
  - Somnolence [None]
  - Diarrhoea [None]
  - Anaemia [None]
  - Somnambulism [None]
  - Fatigue [None]
  - Cardiac disorder [None]

NARRATIVE: CASE EVENT DATE: 20150105
